FAERS Safety Report 10170083 (Version 1)
Quarter: 2014Q2

REPORT INFORMATION
  Report Type: Spontaneous
  Country: FR (occurrence: FR)
  Receive Date: 20140513
  Receipt Date: 20140513
  Transmission Date: 20141212
  Serious: Yes (Other)
  Sender: FDA-Public Use
  Company Number: FR-009507513-1405FRA003759

PATIENT
  Sex: Male

DRUGS (4)
  1. AERIUS [Suspect]
     Dosage: 5 MG, QD
     Route: 048
     Dates: start: 20140330
  2. TAZOCILLINE [Suspect]
     Dosage: 4 G, QD
     Route: 042
     Dates: start: 20140325, end: 20140415
  3. NEUPOGEN [Suspect]
     Dosage: 12 IU, QD
     Route: 042
     Dates: start: 20140326, end: 20140421
  4. OROCAL D3 [Suspect]
     Dosage: 1 DF, QD
     Route: 048
     Dates: start: 20140409

REACTIONS (1)
  - Vascular purpura [Not Recovered/Not Resolved]
